FAERS Safety Report 8558795-1 (Version None)
Quarter: 2012Q3

REPORT INFORMATION
  Report Type: 
  Country: None (occurrence: None)
  Receive Date: 20120801
  Receipt Date: 20120719
  Transmission Date: 20120928
  Serious: Yes (Hospitalization)
  Sender: FDA-Public Use
  Company Number: US-009507513-1207USA008571

PATIENT

DRUGS (3)
  1. REBETOL [Suspect]
     Route: 048
  2. TELAPREVIR [Suspect]
     Route: 048
  3. PEG-INTRON [Suspect]
     Indication: HEPATITIS C
     Route: 011

REACTIONS (1)
  - HOSPITALISATION [None]
